FAERS Safety Report 4783456-4 (Version None)
Quarter: 2005Q3

REPORT INFORMATION
  Report Type: 
  Country: None (occurrence: None)
  Receive Date: 20050928
  Receipt Date: 20050928
  Transmission Date: 20060218
  Serious: Yes (Hospitalization, Other)
  Sender: FDA-Public Use
  Company Number: None

PATIENT
  Sex: Male
  Weight: 89 kg

DRUGS (6)
  1. RITUXIMAB [Suspect]
     Indication: CHRONIC LYMPHOCYTIC LEUKAEMIA
     Dosage: SEE IMAGE
     Route: 042
     Dates: start: 20050815
  2. RITUXIMAB [Suspect]
     Dosage: SEE IMAGE
     Route: 042
     Dates: start: 20050815
  3. RITUXIMAB [Suspect]
     Dosage: SEE IMAGE
     Route: 042
     Dates: start: 20050815
  4. FLUDARABINE [Suspect]
     Dosage: IV
     Route: 042
     Dates: start: 20050815
  5. LEXAPRO [Concomitant]
  6. MEVACOR [Concomitant]

REACTIONS (2)
  - ANAEMIA [None]
  - PNEUMONIA [None]
